FAERS Safety Report 8380518-X (Version None)
Quarter: 2012Q2

REPORT INFORMATION
  Report Type: 
  Country: None (occurrence: None)
  Receive Date: 20120523
  Receipt Date: 20120510
  Transmission Date: 20120825
  Serious: No
  Sender: FDA-Public Use
  Company Number: US-ASTRAZENECA-2012SE30199

PATIENT
  Sex: Female

DRUGS (2)
  1. NEXIUM [Suspect]
     Route: 048
  2. PRIMIN [Concomitant]

REACTIONS (3)
  - OSTEOARTHRITIS [None]
  - FIBROMYALGIA [None]
  - BONE MARROW DISORDER [None]
